FAERS Safety Report 4268833-2 (Version None)
Quarter: 2004Q1

REPORT INFORMATION
  Report Type: 
  Country: None (occurrence: None)
  Receive Date: 20040109
  Receipt Date: 20031229
  Transmission Date: 20041129
  Serious: No
  Sender: FDA-Public Use
  Company Number: 2003AP04593

PATIENT
  Age: 70 Year
  Sex: Male

DRUGS (3)
  1. SEROQUEL [Suspect]
  2. LORAMET [Concomitant]
  3. FAROM [Concomitant]

REACTIONS (1)
  - HYPOTHERMIA [None]
